FAERS Safety Report 11169125 (Version 1)
Quarter: 2015Q2

REPORT INFORMATION
  Report Type: Spontaneous
  Country: US (occurrence: US)
  Receive Date: 20150605
  Receipt Date: 20150605
  Transmission Date: 20150821
  Serious: No
  Sender: FDA-Public Use
  Company Number: US-ELI_LILLY_AND_COMPANY-US201505001708

PATIENT
  Sex: Female

DRUGS (1)
  1. STRATTERA [Suspect]
     Active Substance: ATOMOXETINE HYDROCHLORIDE
     Indication: ATTENTION DEFICIT/HYPERACTIVITY DISORDER
     Dosage: UNK, UNK

REACTIONS (6)
  - Crying [Unknown]
  - Irritability [Unknown]
  - Emotional poverty [Unknown]
  - Drug withdrawal syndrome [Unknown]
  - Mood altered [Unknown]
  - Feelings of worthlessness [Unknown]
